FAERS Safety Report 4987652-2 (Version None)
Quarter: 2006Q2

REPORT INFORMATION
  Report Type: 
  Country: None (occurrence: None)
  Receive Date: 20060424
  Receipt Date: 20060406
  Transmission Date: 20061013
  Serious: Yes (Disabling, Other)
  Sender: FDA-Public Use
  Company Number: US200604001031

PATIENT
  Sex: Male

DRUGS (1)
  1. PROZAC [Suspect]
     Dates: start: 19990101, end: 20000101

REACTIONS (16)
  - AGITATION [None]
  - AMNESIA [None]
  - ANXIETY [None]
  - BIPOLAR DISORDER [None]
  - CONFUSIONAL STATE [None]
  - DISORIENTATION [None]
  - IMPAIRED WORK ABILITY [None]
  - INJURY [None]
  - LOSS OF CONSCIOUSNESS [None]
  - MANIA [None]
  - MUSCLE SPASMS [None]
  - OBSESSIVE-COMPULSIVE DISORDER [None]
  - PANIC DISORDER [None]
  - PSYCHOTIC DISORDER [None]
  - SEROTONIN SYNDROME [None]
  - SHOCK [None]
